FAERS Safety Report 10786227 (Version 1)
Quarter: 2015Q1

REPORT INFORMATION
  Report Type: Spontaneous
  Country: US (occurrence: US)
  Receive Date: 20150211
  Receipt Date: 20150211
  Transmission Date: 20150721
  Serious: Yes (Death, Hospitalization, Other)
  Sender: FDA-Public Use
  Company Number: US-BAXTER-2013BAX014181

PATIENT
  Age: 5 Year
  Sex: Male

DRUGS (6)
  1. FEIBA NF [Suspect]
     Active Substance: ANTI-INHIBITOR COAGULANT COMPLEX
     Dosage: 75 UNITS/KG
     Route: 065
  2. PLASMA-DERIVED FVIII/VWF CONCENTRATE [Suspect]
     Active Substance: HUMAN COAGULATION FACTOR VIII/VON WILLEBRAND FACTOR COMPLEX
     Dosage: 3000 TO 4800 UNITS
     Route: 065
  3. FEIBA NF [Suspect]
     Active Substance: ANTI-INHIBITOR COAGULANT COMPLEX
     Route: 065
  4. FEIBA NF [Suspect]
     Active Substance: ANTI-INHIBITOR COAGULANT COMPLEX
     Indication: FACTOR VIII DEFICIENCY
     Dosage: 75 UNITS/KG
     Route: 065
  5. RVIIA [Suspect]
     Active Substance: COAGULATION FACTOR VII HUMAN
     Indication: FACTOR VIII DEFICIENCY
     Route: 065
  6. PLASMA-DERIVED FVIII/VWF CONCENTRATE [Suspect]
     Active Substance: HUMAN COAGULATION FACTOR VIII/VON WILLEBRAND FACTOR COMPLEX
     Indication: FACTOR VIII INHIBITION
     Dosage: 200 UNITS/KG
     Route: 065

REACTIONS (7)
  - Pulmonary embolism [Fatal]
  - Factor VIII inhibition [Not Recovered/Not Resolved]
  - Haemorrhage [Unknown]
  - Right ventricular failure [Fatal]
  - Pneumonia [Unknown]
  - Cardiomegaly [None]
  - Pneumothorax [Not Recovered/Not Resolved]
